FAERS Safety Report 4824681-3 (Version None)
Quarter: 2005Q4

REPORT INFORMATION
  Report Type: 
  Country: None (occurrence: None)
  Receive Date: 20051012
  Receipt Date: 20050811
  Transmission Date: 20060501
  Serious: No
  Sender: FDA-Public Use
  Company Number: 2005S1000181

PATIENT
  Age: 27 Year
  Weight: 58.2 kg

DRUGS (1)
  1. CUBICIN [Suspect]
     Dosage: 240 MG; Q24H; IV
     Route: 042
     Dates: start: 20050811, end: 20050824

REACTIONS (2)
  - MEDICATION ERROR [None]
  - NO ADVERSE DRUG EFFECT [None]
